FAERS Safety Report 15735953 (Version 1)
Quarter: 2018Q4

REPORT INFORMATION
  Report Type: Report from Study
  Country: CN (occurrence: CN)
  Receive Date: 20181218
  Receipt Date: 20181218
  Transmission Date: 20190205
  Serious: Yes (Death)
  Sender: FDA-Public Use
  Company Number: CN-JNJFOC-20181117651

PATIENT
  Age: 81 Year
  Sex: Male
  Weight: 66 kg

DRUGS (3)
  1. PREDNISONE. [Suspect]
     Active Substance: PREDNISONE
     Indication: PROSTATE CANCER
     Dosage: MEDICAL KIT NUMBER: 501401 AND 501402,502248
     Route: 048
     Dates: start: 20170818, end: 20181028
  2. ABIRATERONE ACETATE. [Suspect]
     Active Substance: ABIRATERONE ACETATE
     Route: 048
  3. ABIRATERONE ACETATE. [Suspect]
     Active Substance: ABIRATERONE ACETATE
     Indication: PROSTATE CANCER
     Dosage: MEDICAL KIT NUMBER:86358, 86289 AND 86290
     Route: 048
     Dates: start: 20170818, end: 20181028

REACTIONS (4)
  - Pulmonary arterial hypertension [Fatal]
  - Pleural effusion [Fatal]
  - Cardiac failure [Fatal]
  - Lung infection [Fatal]

NARRATIVE: CASE EVENT DATE: 20181022
